FAERS Safety Report 13513953 (Version 1)
Quarter: 2017Q2

REPORT INFORMATION
  Report Type: Spontaneous
  Country: US (occurrence: US)
  Receive Date: 20170504
  Receipt Date: 20170504
  Transmission Date: 20170830
  Serious: No
  Sender: FDA-Public Use
  Company Number: US-PFIZER INC-2017191152

PATIENT
  Sex: Female

DRUGS (2)
  1. XELJANZ [Suspect]
     Active Substance: TOFACITINIB CITRATE
     Dosage: 5 MG, UNK
  2. METHOTREXATE. [Concomitant]
     Active Substance: METHOTREXATE
     Dosage: UNK

REACTIONS (19)
  - Arthralgia [Unknown]
  - Pruritus [Unknown]
  - Dyspnoea [Unknown]
  - Tenderness [Unknown]
  - Spinal pain [Unknown]
  - Herpes zoster [Unknown]
  - Headache [Unknown]
  - Back pain [Unknown]
  - Asthenia [Unknown]
  - Abdominal pain [Unknown]
  - Synovitis [Unknown]
  - Dizziness [Unknown]
  - Rash [Unknown]
  - Joint effusion [Unknown]
  - Fatigue [Unknown]
  - Swelling [Unknown]
  - Joint range of motion decreased [Unknown]
  - Crepitations [Unknown]
  - Wheezing [Unknown]
